FAERS Safety Report 18724248 (Version 1)
Quarter: 2021Q1

REPORT INFORMATION
  Report Type: Spontaneous
  Country: US (occurrence: US)
  Receive Date: 20210110
  Receipt Date: 20210110
  Transmission Date: 20210419
  Serious: Yes (Other)
  Sender: FDA-Public Use
  Company Number: None

PATIENT
  Age: 32 Year
  Sex: Female
  Weight: 57.6 kg

DRUGS (5)
  1. BIOTIN [Concomitant]
     Active Substance: BIOTIN
  2. VEGAMOUR HAIR GROWTH SCALP SERUM [Concomitant]
  3. AMOXICILLIN?CLAVULANATE 875 MG/125 MG [Suspect]
     Active Substance: AMOXICILLIN\CLAVULANATE POTASSIUM
     Indication: EAR INFECTION
     Dosage: ?          QUANTITY:20 TABLET(S);?
     Route: 048
     Dates: start: 20201213, end: 20201224
  4. MULTI VITAMIN GUMMIES [Concomitant]
  5. AMOXICILLIN?CLAVULANATE 875 MG/125 MG [Suspect]
     Active Substance: AMOXICILLIN\CLAVULANATE POTASSIUM
     Indication: CYSTITIS
     Dosage: ?          QUANTITY:20 TABLET(S);?
     Route: 048
     Dates: start: 20201213, end: 20201224

REACTIONS (5)
  - Hypoaesthesia [None]
  - Burning sensation [None]
  - Nervous system disorder [None]
  - Abdominal discomfort [None]
  - Skin burning sensation [None]

NARRATIVE: CASE EVENT DATE: 20201213
